FAERS Safety Report 19986052 (Version 6)
Quarter: 2022Q3

REPORT INFORMATION
  Report Type: Report from Study
  Country: US (occurrence: US)
  Receive Date: 20211022
  Receipt Date: 20220830
  Transmission Date: 20221026
  Serious: No
  Sender: FDA-Public Use
  Company Number: US-NOVARTISTESTPH-NVSC2021US240212

PATIENT
  Age: 14 Year
  Sex: Male

DRUGS (2)
  1. ILARIS [Suspect]
     Active Substance: CANAKINUMAB
     Indication: Cryopyrin associated periodic syndrome
     Dosage: 180 MG EVERY 2 MONTHS
     Route: 058
     Dates: start: 20131115
  2. ILARIS [Suspect]
     Active Substance: CANAKINUMAB
     Dosage: 180 MG, Q2W
     Route: 058
     Dates: start: 20191106

REACTIONS (3)
  - Illness [Unknown]
  - Ill-defined disorder [Unknown]
  - Inappropriate schedule of product administration [Recovered/Resolved]

NARRATIVE: CASE EVENT DATE: 20210701
